FAERS Safety Report 5492458-4 (Version None)
Quarter: 2007Q4

REPORT INFORMATION
  Report Type: 
  Country: None (occurrence: None)
  Receive Date: 20071015
  Receipt Date: 20070822
  Transmission Date: 20080405
  Serious: No
  Sender: FDA-Public Use
  Company Number: 2007SP002936

PATIENT
  Sex: Female
  Weight: 77.1115 kg

DRUGS (3)
  1. LUNESTA [Suspect]
     Dosage: 3 MG; HS; ORAL, 2 MG; HS; ORAL, 3 MG; HS; ORAL, 1.5 MG; HS; ORAL
     Route: 048
     Dates: end: 20070809
  2. LUNESTA [Suspect]
     Dosage: 3 MG; HS; ORAL, 2 MG; HS; ORAL, 3 MG; HS; ORAL, 1.5 MG; HS; ORAL
     Route: 048
     Dates: start: 20070810, end: 20070814
  3. LUNESTA [Suspect]
     Dosage: 3 MG; HS; ORAL, 2 MG; HS; ORAL, 3 MG; HS; ORAL, 1.5 MG; HS; ORAL
     Route: 048
     Dates: start: 20050101

REACTIONS (7)
  - AMNESIA [None]
  - DRUG INEFFECTIVE [None]
  - HEADACHE [None]
  - INCREASED APPETITE [None]
  - INSOMNIA [None]
  - RASH PRURITIC [None]
  - SOMNOLENCE [None]
